FAERS Safety Report 8046916 (Version 3)
Quarter: 2013Q1

REPORT INFORMATION
  Report Type: Spontaneous
  Country: JP (occurrence: None)
  Receive Date: 20110707
  Receipt Date: 20130116
  Transmission Date: 20140127
  Serious: Yes (Disabling)
  Sender: FDA-Public Use
  Company Number: JP-2011-11004

PATIENT
  Age: 85 Year
  Sex: Female
  Weight: 35 kg

DRUGS (12)
  1. SAMSCA [Suspect]
     Indication: CARDIAC FAILURE
     Route: 048
     Dates: start: 20110619, end: 20110619
  2. LASIX [Suspect]
     Indication: DIURETIC THERAPY
     Route: 041
     Dates: start: 20110611, end: 20110617
  3. HANP (CARPERITIDE(GENETICAL RECOMBINATION)) [Concomitant]
  4. SEISHOKU (ISOTONIC SODIUM CHLORIDE SOUTION) [Concomitant]
  5. CALLBLOCK (AZELNIDIPINE) [Concomitant]
  6. ASPIRIN [Concomitant]
  7. ARICEPT [Concomitant]
  8. NAUZELIN [Concomitant]
  9. NORVASC [Concomitant]
  10. ENALAPRIL MALEATE [Concomitant]
  11. ZANTAC [Concomitant]
  12. WARFARIN (WARFARIN POTASSIUM) [Concomitant]

REACTIONS (13)
  - PO2 decreased [None]
  - Blood bicarbonate increased [None]
  - PO2 increased [None]
  - PCO2 increased [None]
  - Respiratory disorder [None]
  - Haemoglobin decreased [None]
  - Haemodilution [None]
  - Hypernatraemia [None]
  - Altered state of consciousness [None]
  - Blood pH increased [None]
  - Aspartate aminotransferase increased [None]
  - Blood alkaline phosphatase increased [None]
  - Cardiac failure [None]
